FAERS Safety Report 8595793-6 (Version None)
Quarter: 2012Q3

REPORT INFORMATION
  Report Type: 
  Country: None (occurrence: None)
  Receive Date: 20120815
  Receipt Date: 20120803
  Transmission Date: 20120928
  Serious: Yes (Hospitalization)
  Sender: FDA-Public Use
  Company Number: FR-ROCHE-1098004

PATIENT
  Sex: Female

DRUGS (8)
  1. PREVISCAN (FRANCE) [Interacting]
     Dosage: RESTARTED
  2. ESCITALOPRAM [Concomitant]
  3. LASIX [Concomitant]
  4. DEPAKENE [Concomitant]
  5. ROCEPHIN [Suspect]
     Indication: CULTURE URINE POSITIVE
     Route: 058
     Dates: start: 20110103, end: 20110107
  6. PREVISCAN (FRANCE) [Interacting]
     Indication: PRODUCT USED FOR UNKNOWN INDICATION
     Route: 048
     Dates: end: 20110107
  7. DICETEL [Concomitant]
  8. POTASSIUM CHLORIDE [Concomitant]

REACTIONS (4)
  - HAEMATOMA [None]
  - ANAEMIA [None]
  - RENAL FAILURE ACUTE [None]
  - DRUG INTERACTION [None]
